FAERS Safety Report 14492271 (Version 5)
Quarter: 2018Q2

REPORT INFORMATION
  Report Type: Report from Study
  Country: US (occurrence: US)
  Receive Date: 20180206
  Receipt Date: 20180521
  Transmission Date: 20180711
  Serious: Yes (Other)
  Sender: FDA-Public Use
  Company Number: US-PFIZER INC-2017448882

PATIENT
  Age: 85 Year
  Sex: Female

DRUGS (5)
  1. IBRANCE [Suspect]
     Active Substance: PALBOCICLIB
     Indication: BREAST CANCER FEMALE
     Dosage: 125 MG, CYCLIC (DAILY, 3 WEEKS ON, 1 WEEK OFF)
     Route: 048
     Dates: start: 20171011, end: 20171206
  2. VERAPAMIL HCL [Interacting]
     Active Substance: VERAPAMIL HYDROCHLORIDE
     Dosage: UNK
  3. IBRANCE [Interacting]
     Active Substance: PALBOCICLIB
     Dosage: 125 MG, 1X/DAY
     Route: 048
     Dates: start: 20171011, end: 20180227
  4. IBRANCE [Interacting]
     Active Substance: PALBOCICLIB
     Dosage: 100 MG, 1X/DAY
     Route: 048
     Dates: start: 20180321
  5. IBRANCE [Interacting]
     Active Substance: PALBOCICLIB
     Dosage: 125 MG, 1X/DAY
     Route: 048
     Dates: start: 20171214

REACTIONS (18)
  - Platelet count decreased [Not Recovered/Not Resolved]
  - Lacrimation increased [Unknown]
  - Onychoclasis [Unknown]
  - Neutrophil count decreased [Unknown]
  - Red blood cell count decreased [Unknown]
  - Bone marrow failure [Not Recovered/Not Resolved]
  - Labelled drug-drug interaction medication error [Unknown]
  - Fatigue [Recovering/Resolving]
  - Epistaxis [Unknown]
  - Thrombocytopenia [Unknown]
  - Constipation [Unknown]
  - Asthenia [Recovering/Resolving]
  - Alopecia [Not Recovered/Not Resolved]
  - Dry skin [Unknown]
  - White blood cell count decreased [Unknown]
  - Anxiety [Unknown]
  - Blood pressure increased [Recovered/Resolved]
  - Flushing [Unknown]

NARRATIVE: CASE EVENT DATE: 2017
